FAERS Safety Report 5039539-7 (Version None)
Quarter: 2006Q2

REPORT INFORMATION
  Report Type: 
  Country: None (occurrence: None)
  Receive Date: 20060601
  Receipt Date: 20060117
  Transmission Date: 20061013
  Serious: No
  Sender: FDA-Public Use
  Company Number: 2006PV007199

PATIENT
  Age: 72 Year
  Sex: Male
  Weight: 110.2241 kg

DRUGS (4)
  1. BYETTA [Suspect]
     Indication: DIABETES MELLITUS NON-INSULIN-DEPENDENT
     Dosage: SEE IMAGE
     Route: 058
     Dates: start: 20051208, end: 20060101
  2. BYETTA [Suspect]
     Indication: DIABETES MELLITUS NON-INSULIN-DEPENDENT
     Dosage: SEE IMAGE
     Route: 058
     Dates: start: 20060102, end: 20060116
  3. GLYBURIDE [Concomitant]
  4. AVANDIA [Concomitant]

REACTIONS (6)
  - ABDOMINAL PAIN [None]
  - DECREASED APPETITE [None]
  - FLATULENCE [None]
  - NAUSEA [None]
  - STOMACH DISCOMFORT [None]
  - WEIGHT DECREASED [None]
